FAERS Safety Report 4683875-0 (Version None)
Quarter: 2005Q2

REPORT INFORMATION
  Report Type: 
  Country: None (occurrence: None)
  Receive Date: 20050607
  Receipt Date: 20050331
  Transmission Date: 20051028
  Serious: Yes (Hospitalization)
  Sender: FDA-Public Use
  Company Number: JP-ROCHE-401188

PATIENT
  Age: 28 Year
  Sex: Female

DRUGS (6)
  1. TAMIFLU [Suspect]
     Route: 048
     Dates: start: 20050328, end: 20050329
  2. TAMIFLU [Suspect]
     Route: 048
     Dates: start: 20050330, end: 20050330
  3. CALONAL [Concomitant]
     Dosage: NOTES: 1-2 CP.
     Route: 048
     Dates: start: 20050328, end: 20050330
  4. ZITHROMAC [Concomitant]
     Route: 048
     Dates: start: 20050329, end: 20050329
  5. MUCOSTA [Concomitant]
     Route: 048
     Dates: start: 20050329, end: 20050329
  6. MUCOSAL [Concomitant]
     Route: 048
     Dates: start: 20050328, end: 20050330

REACTIONS (1)
  - STEVENS-JOHNSON SYNDROME [None]
